FAERS Safety Report 6254749-9 (Version None)
Quarter: 2009Q3

REPORT INFORMATION
  Report Type: 
  Country: None (occurrence: None)
  Receive Date: 20090702
  Receipt Date: 20090625
  Transmission Date: 20100115
  Serious: No
  Sender: FDA-Public Use
  Company Number: US-B.I. PHARMACEUTICALS,INC./RIDGEFIELD-2009-BP-07776BP

PATIENT
  Sex: Female
  Weight: 46.72 kg

DRUGS (7)
  1. SPIRIVA [Suspect]
     Indication: CHRONIC OBSTRUCTIVE PULMONARY DISEASE
     Dosage: 18 MCG
     Route: 055
     Dates: start: 20090515
  2. ZYREC [Concomitant]
     Indication: HYPERSENSITIVITY
  3. SINGULAIR [Concomitant]
     Indication: HYPERSENSITIVITY
  4. PROAIR HFA [Concomitant]
     Indication: ASTHMA
  5. LIPITOR [Concomitant]
     Indication: BLOOD CHOLESTEROL INCREASED
  6. FISH OIL [Concomitant]
     Indication: BLOOD CHOLESTEROL INCREASED
  7. DIOVAN [Concomitant]
     Indication: HYPERTENSION

REACTIONS (3)
  - AGEUSIA [None]
  - DRY MOUTH [None]
  - LOCALISED INFECTION [None]
